FAERS Safety Report 6370278-6 (Version None)
Quarter: 2009Q3

REPORT INFORMATION
  Report Type: 
  Country: None (occurrence: None)
  Receive Date: 20090923
  Receipt Date: 20090922
  Transmission Date: 20100115
  Serious: Yes (Other)
  Sender: FDA-Public Use
  Company Number: BE-JNJFOC-20090305272

PATIENT
  Age: 16 Year
  Sex: Male

DRUGS (3)
  1. REMICADE [Suspect]
     Indication: CROHN'S DISEASE
     Dosage: 3 INFUSIONS ON UNSPECIFIED DATES AT WEEK 0, 2, AND 6
     Route: 042
  2. CORTICOSTEROIDS [Concomitant]
  3. IMURAN [Concomitant]

REACTIONS (3)
  - ANTIDIURETIC HORMONE ABNORMALITY [None]
  - LEUKOPENIA [None]
  - THROMBOCYTOPENIA [None]
